FAERS Safety Report 25743825 (Version 2)
Quarter: 2025Q3

REPORT INFORMATION
  Report Type: Spontaneous
  Country: JP (occurrence: JP)
  Receive Date: 20250831
  Receipt Date: 20250907
  Transmission Date: 20251021
  Serious: Yes (Hospitalization, Other)
  Sender: TAKEDA
  Company Number: JP-TAKEDA-2025TJP008850

PATIENT
  Age: 7 Decade
  Sex: Female

DRUGS (4)
  1. VONVENDI [Suspect]
     Active Substance: VON WILLEBRAND FACTOR (RECOMBINANT)
     Indication: Von Willebrand^s disease
  2. ADVATE [Suspect]
     Active Substance: ANTIHEMOPHILIC FACTOR, HUMAN RECOMBINANT
     Indication: Product used for unknown indication
  3. ADVATE [Suspect]
     Active Substance: ANTIHEMOPHILIC FACTOR, HUMAN RECOMBINANT
  4. ADVATE [Suspect]
     Active Substance: ANTIHEMOPHILIC FACTOR, HUMAN RECOMBINANT

REACTIONS (2)
  - Procedural haemorrhage [Recovered/Resolved]
  - Spinal ligament ossification [Not Recovered/Not Resolved]

NARRATIVE: CASE EVENT DATE: 20250822
